FAERS Safety Report 8482553-X (Version None)
Quarter: 2012Q3

REPORT INFORMATION
  Report Type: 
  Country: None (occurrence: None)
  Receive Date: 20120702
  Receipt Date: 20120622
  Transmission Date: 20120928
  Serious: Yes (Other)
  Sender: FDA-Public Use
  Company Number: DE-JNJFOC-20120612956

PATIENT

DRUGS (2)
  1. MEMANTINE HCL [Suspect]
     Indication: COGNITIVE DISORDER
     Dosage: DOSE TITRATION OF 12 WEEKS(8 WEEKS FOR GALANTAMINE AND 4 WEEKS FOR MEMANTINE)
     Route: 065
  2. GALANTAMINE HYDROBROMIDE [Suspect]
     Indication: COGNITIVE DISORDER
     Dosage: EITHER MONO GROUP OR COMBI GROUP
     Route: 065

REACTIONS (7)
  - TREMOR [None]
  - HEADACHE [None]
  - ASTHENIA [None]
  - TACHYCARDIA [None]
  - VERTIGO [None]
  - NAUSEA [None]
  - ABDOMINAL PAIN [None]
